FAERS Safety Report 7909464-X (Version None)
Quarter: 2011Q4

REPORT INFORMATION
  Report Type: 
  Country: None (occurrence: None)
  Receive Date: 20111111
  Receipt Date: 20111101
  Transmission Date: 20120403
  Serious: Yes (Other)
  Sender: FDA-Public Use
  Company Number: US-JNJFOC-20111100320

PATIENT
  Sex: Female

DRUGS (2)
  1. REMICADE [Suspect]
     Indication: RHEUMATOID ARTHRITIS
     Route: 042
     Dates: start: 20090101
  2. REMICADE [Suspect]
     Route: 042
     Dates: start: 20110901, end: 20110901

REACTIONS (5)
  - INFUSION RELATED REACTION [None]
  - VOMITING [None]
  - FEELING HOT [None]
  - THROAT TIGHTNESS [None]
  - DYSPNOEA [None]
